FAERS Safety Report 9861782 (Version 2)
Quarter: 2014Q1

REPORT INFORMATION
  Report Type: Report from Study
  Country: CA (occurrence: CA)
  Receive Date: 20140203
  Receipt Date: 20140203
  Transmission Date: 20141002
  Serious: Yes (Other)
  Sender: FDA-Public Use
  Company Number: CA-BAYER-2013-002224

PATIENT
  Sex: Female

DRUGS (2)
  1. BEATSERON [Suspect]
     Indication: MULTIPLE SCLEROSIS
     Dosage: 0.250 MG, UNK
     Dates: start: 20070101, end: 20131115
  2. THYROXINE [Concomitant]

REACTIONS (3)
  - Fat necrosis [None]
  - Injection site atrophy [Not Recovered/Not Resolved]
  - Chills [Recovered/Resolved]
